FAERS Safety Report 7426307-1 (Version None)
Quarter: 2011Q2

REPORT INFORMATION
  Report Type: 
  Country: None (occurrence: None)
  Receive Date: 20110420
  Receipt Date: 20110412
  Transmission Date: 20111010
  Serious: Yes (Hospitalization)
  Sender: FDA-Public Use
  Company Number: B0542846A

PATIENT
  Sex: Female

DRUGS (10)
  1. LENALIDOMIDE [Suspect]
     Indication: MULTIPLE MYELOMA
     Route: 048
     Dates: start: 20080924
  2. NORVASC [Concomitant]
     Route: 048
  3. DIOVAN [Concomitant]
     Route: 048
  4. PREDNISONE [Suspect]
     Indication: MULTIPLE MYELOMA
     Dosage: 124MG PER DAY
     Route: 065
     Dates: start: 20080924, end: 20080927
  5. MONONIT [Concomitant]
     Route: 048
  6. VITAMIN D + CALCIUM [Concomitant]
     Dosage: 1TAB TWICE PER DAY
     Route: 048
  7. NORMITEN [Concomitant]
     Route: 048
  8. OMEPRAZOLE [Concomitant]
     Route: 048
  9. MELPHALAN [Suspect]
     Indication: MULTIPLE MYELOMA
     Dosage: 12MG PER DAY
     Route: 065
     Dates: start: 20080924, end: 20080927
  10. MICROPIRIN [Concomitant]
     Dosage: 100MG PER DAY
     Route: 048

REACTIONS (5)
  - DYSPHEMIA [None]
  - HEADACHE [None]
  - CONFUSIONAL STATE [None]
  - APHASIA [None]
  - CEREBRAL ISCHAEMIA [None]
